FAERS Safety Report 8958729 (Version 1)
Quarter: 2012Q4

REPORT INFORMATION
  Report Type: Spontaneous
  Country: US (occurrence: None)
  Receive Date: 20121206
  Receipt Date: 20121206
  Transmission Date: 20130627
  Serious: Yes (Hospitalization)
  Sender: FDA-Public Use
  Company Number: None

PATIENT
  Age: 55 Year
  Sex: Male
  Weight: 93.8 kg

DRUGS (1)
  1. WARFARIN [Suspect]
     Indication: ATRIAL FIBRILLATION
     Dosage: at bedtime
     Route: 048
     Dates: start: 20121112, end: 20121128

REACTIONS (4)
  - Haemorrhage [None]
  - International normalised ratio increased [None]
  - Fall [None]
  - Subdural haematoma [None]
